FAERS Safety Report 13006894 (Version 1)
Quarter: 2016Q4

REPORT INFORMATION
  Report Type: Spontaneous
  Country: US (occurrence: US)
  Receive Date: 20161207
  Receipt Date: 20161207
  Transmission Date: 20170207
  Serious: Yes (Other)
  Sender: FDA-Public Use
  Company Number: US-INDIVIOR LIMITED-INDV-096879-2016

PATIENT
  Age: 20 Year
  Sex: Female

DRUGS (6)
  1. CANNABIS [Suspect]
     Active Substance: CANNABIS SATIVA SUBSP. INDICA TOP
     Indication: ANXIETY
     Dosage: UNK, 3-4 TIMES PER WEEK
     Route: 065
  2. CLONIDINE. [Suspect]
     Active Substance: CLONIDINE
     Indication: PRODUCT USED FOR UNKNOWN INDICATION
     Dosage: 0.1 MG, EVERY FOUR HOURS
     Route: 065
  3. SUBOXONE [Suspect]
     Active Substance: BUPRENORPHINE HYDROCHLORIDE\NALOXONE HYDROCHLORIDE
     Indication: DRUG ABUSE
     Dosage: 8 MG, DAY
     Route: 065
  4. CLONIDINE. [Suspect]
     Active Substance: CLONIDINE
     Dosage: TOOK 3 ADDITIONAL TABLETS
     Route: 065
  5. SUBOXONE [Suspect]
     Active Substance: BUPRENORPHINE HYDROCHLORIDE\NALOXONE HYDROCHLORIDE
     Dosage: GRADUALLY INCREASED FROM 8 MG TO 16 MG
     Route: 065
  6. CANNABIS [Suspect]
     Active Substance: CANNABIS SATIVA SUBSP. INDICA TOP
     Indication: NAUSEA

REACTIONS (22)
  - Blindness [Unknown]
  - Myalgia [Unknown]
  - Asthenia [Unknown]
  - Drug screen positive [Unknown]
  - Post-traumatic stress disorder [Unknown]
  - Nightmare [Unknown]
  - Hypotension [Recovering/Resolving]
  - Substance abuse [Unknown]
  - Anxiety [Unknown]
  - Insomnia [Unknown]
  - Hyperhidrosis [Unknown]
  - Mydriasis [Unknown]
  - Diarrhoea [Unknown]
  - Syncope [Unknown]
  - Maternal exposure during pregnancy [Recovered/Resolved]
  - Pallor [Unknown]
  - Bradycardia [Recovered/Resolved]
  - Drug withdrawal syndrome [Unknown]
  - Drug abuse [Unknown]
  - Vomiting in pregnancy [Unknown]
  - Restlessness [Unknown]
  - Overdose [Unknown]
